FAERS Safety Report 10252382 (Version 1)
Quarter: 2014Q2

REPORT INFORMATION
  Report Type: Spontaneous
  Country: FR (occurrence: FR)
  Receive Date: 20140623
  Receipt Date: 20140623
  Transmission Date: 20141212
  Serious: Yes (Hospitalization)
  Sender: FDA-Public Use
  Company Number: FR-MERCK-1406FRA008890

PATIENT
  Age: 37 Year
  Sex: Female

DRUGS (3)
  1. PUREGON [Suspect]
     Indication: IN VITRO FERTILISATION
     Dosage: 150 IU, QD
     Route: 058
     Dates: start: 20131208, end: 20131216
  2. ORGALUTRAN [Suspect]
     Indication: IN VITRO FERTILISATION
     Dosage: 1 DF, QD
     Route: 058
     Dates: start: 20131213, end: 20131216
  3. OVITRELLE [Suspect]
     Indication: IN VITRO FERTILISATION
     Dosage: 1 DF, ONCE
     Route: 058
     Dates: start: 20131217, end: 20131217

REACTIONS (3)
  - Ascites [Recovered/Resolved]
  - Pleural effusion [Recovered/Resolved]
  - Ovarian hyperstimulation syndrome [Recovered/Resolved]
